FAERS Safety Report 6650274-1 (Version None)
Quarter: 2010Q1

REPORT INFORMATION
  Report Type: 
  Country: None (occurrence: None)
  Receive Date: 20100325
  Receipt Date: 20100319
  Transmission Date: 20100710
  Serious: No
  Sender: FDA-Public Use
  Company Number: US-B.I. PHARMACEUTICALS,INC./RIDGEFIELD-2008-BP-15001BP

PATIENT
  Sex: Female
  Weight: 122.47 kg

DRUGS (8)
  1. MIRAPEX [Suspect]
     Indication: RESTLESS LEGS SYNDROME
     Dosage: 0.5 MG
     Dates: start: 20070708, end: 20080501
  2. MIRAPEX [Suspect]
     Indication: PARKINSON'S DISEASE
  3. MIRAPEX [Suspect]
     Indication: MUSCLE SPASTICITY
  4. MIRAPEX [Suspect]
     Indication: PAIN IN EXTREMITY
  5. MIRAPEX [Suspect]
     Indication: SLEEP DISORDER
  6. MIRAPEX [Suspect]
     Indication: NERVE INJURY
  7. INSULIN [Concomitant]
     Indication: DIABETES MELLITUS
     Route: 058
     Dates: start: 20050101
  8. VITAMIN AND MINERAL PRENATAL SUPPLEMENT W/ FOLIC ACID CAP [Concomitant]
     Indication: PREGNANCY
     Route: 048
     Dates: start: 20080101, end: 20090216

REACTIONS (2)
  - GAIT DISTURBANCE [None]
  - INSOMNIA [None]
